FAERS Safety Report 25807646 (Version 2)
Quarter: 2025Q3

REPORT INFORMATION
  Report Type: Report from Study
  Country: US (occurrence: US)
  Receive Date: 20250916
  Receipt Date: 20250930
  Transmission Date: 20251020
  Serious: Yes (Other)
  Sender: UCB
  Company Number: US-UCBSA-2025017202

PATIENT
  Age: 27 Year
  Sex: Male
  Weight: 62.3 kg

DRUGS (7)
  1. FINTEPLA [Suspect]
     Active Substance: FENFLURAMINE
     Indication: Lennox-Gastaut syndrome
     Dates: start: 20230614
  2. FINTEPLA [Suspect]
     Active Substance: FENFLURAMINE
     Dates: start: 20230929
  3. FINTEPLA [Suspect]
     Active Substance: FENFLURAMINE
     Dosage: 5.9 MILLILITER, 2X/DAY (BID)
  4. FINTEPLA [Suspect]
     Active Substance: FENFLURAMINE
     Dosage: 5.9 MILLILITER, 2X/DAY (BID)
     Route: 048
  5. FINTEPLA [Suspect]
     Active Substance: FENFLURAMINE
     Dates: start: 20240102
  6. FINTEPLA [Suspect]
     Active Substance: FENFLURAMINE
     Dates: start: 20250317
  7. FINTEPLA [Suspect]
     Active Substance: FENFLURAMINE
     Dates: start: 20230514

REACTIONS (6)
  - Medical device battery replacement [Not Recovered/Not Resolved]
  - Aortic valve incompetence [Not Recovered/Not Resolved]
  - Mitral valve incompetence [Not Recovered/Not Resolved]
  - Mitral valve thickening [Unknown]
  - Dilatation atrial [Unknown]
  - Dilatation ventricular [Unknown]

NARRATIVE: CASE EVENT DATE: 20240202
